FAERS Safety Report 5591938-0 (Version None)
Quarter: 2008Q1

REPORT INFORMATION
  Report Type: 
  Country: None (occurrence: None)
  Receive Date: 20080115
  Receipt Date: 20080107
  Transmission Date: 20080703
  Serious: Yes (Life-Threatening)
  Sender: FDA-Public Use
  Company Number: JP-ELI_LILLY_AND_COMPANY-JP200712000087

PATIENT
  Sex: Female
  Weight: 46 kg

DRUGS (4)
  1. GEMCITABINE HCL [Suspect]
     Indication: GALLBLADDER CANCER STAGE IV
     Dosage: 800 MG, OTHER
     Route: 042
     Dates: start: 20050222, end: 20051206
  2. GEMCITABINE HCL [Suspect]
     Dosage: 800 MG, OTHER
     Route: 013
     Dates: start: 20051220, end: 20060530
  3. DECADRON [Concomitant]
     Indication: ANOREXIA
     Dosage: 8 MG, UNKNOWN
     Route: 042
     Dates: start: 20050222, end: 20051206
  4. KYTRIL [Concomitant]
     Indication: PROPHYLAXIS OF NAUSEA AND VOMITING
     Dosage: 3 MG, UNKNOWN
     Route: 042
     Dates: start: 20050222, end: 20051206

REACTIONS (1)
  - ACUTE PROMYELOCYTIC LEUKAEMIA [None]
